FAERS Safety Report 26209949 (Version 1)
Quarter: 2025Q4

REPORT INFORMATION
  Report Type: Spontaneous
  Country: EU (occurrence: EU)
  Receive Date: 20251229
  Receipt Date: 20251229
  Transmission Date: 20260118
  Serious: Yes (Other)
  Sender: MYLAN
  Company Number: EU-MYLANLABS-2025M1099847

PATIENT
  Sex: Female

DRUGS (1)
  1. CLOZARIL [Suspect]
     Active Substance: CLOZAPINE
     Indication: Schizophrenia
     Dosage: UNK
     Route: 061
     Dates: start: 20230418, end: 20251209

REACTIONS (4)
  - Multiple sclerosis [Unknown]
  - Pneumonia [Unknown]
  - General physical health deterioration [Unknown]
  - Differential white blood cell count abnormal [Unknown]
